FAERS Safety Report 7036411-8 (Version None)
Quarter: 2010Q4

REPORT INFORMATION
  Report Type: 
  Country: None (occurrence: None)
  Receive Date: 20101010
  Receipt Date: 20100929
  Transmission Date: 20110411
  Serious: Yes (Hospitalization)
  Sender: FDA-Public Use
  Company Number: PHHY2010NL64486

PATIENT
  Sex: Male

DRUGS (3)
  1. ZOMETA [Suspect]
     Indication: PANCREATIC CARCINOMA
     Dosage: 4 MG/5 ML
     Route: 042
     Dates: start: 20100521
  2. ZOMETA [Suspect]
     Dosage: 4 MG/5 ML
     Dates: start: 20100812
  3. ZOMETA [Suspect]
     Dosage: 4 MG/5 ML
     Dates: start: 20100909

REACTIONS (3)
  - BLOOD URINE PRESENT [None]
  - MICTURITION DISORDER [None]
  - SCROTAL OEDEMA [None]
